FAERS Safety Report 6668847-9 (Version None)
Quarter: 2010Q2

REPORT INFORMATION
  Report Type: 
  Country: None (occurrence: None)
  Receive Date: 20100406
  Receipt Date: 20100330
  Transmission Date: 20101027
  Serious: Yes (Death)
  Sender: FDA-Public Use
  Company Number: US-ROCHE-692900

PATIENT
  Sex: Female
  Weight: 58.1 kg

DRUGS (15)
  1. BEVACIZUMAB [Suspect]
     Indication: GLIOBLASTOMA MULTIFORME
     Route: 042
     Dates: start: 20090922, end: 20100223
  2. EVEROLIMUS [Suspect]
     Indication: GLIOBLASTOMA MULTIFORME
     Route: 048
     Dates: start: 20100224, end: 20100228
  3. TEMOZOLOMIDE [Suspect]
     Indication: GLIOBLASTOMA MULTIFORME
     Dosage: 7 WEEKS XRT TEMODAR THEN 3 CYCLES SYSTEMIC.
     Route: 065
  4. LISINOPRIL [Concomitant]
     Route: 048
     Dates: start: 20100209
  5. LISINOPRIL [Concomitant]
     Dosage: SUBCUTANEOUS
     Route: 048
     Dates: start: 20100216
  6. LOVENOX [Concomitant]
     Route: 058
     Dates: start: 20100216
  7. COUMADIN [Concomitant]
     Dosage: DOSE: 5MG ALTERNATING WITH 2.5MG DAILY.
     Route: 048
     Dates: start: 20100216
  8. DILANTIN [Concomitant]
     Route: 048
     Dates: start: 20090903
  9. MEGACE [Concomitant]
     Dosage: DRUG: MEGACE ES
     Route: 048
     Dates: start: 20091224
  10. DECADRON [Concomitant]
     Route: 048
     Dates: start: 20091215
  11. CALCIUM [Concomitant]
     Route: 048
     Dates: start: 20090527
  12. VITAMIN B-12 [Concomitant]
     Dosage: DOSE: 1000 MCG/ML
     Route: 030
     Dates: start: 20070621
  13. FAMOTIDINE [Concomitant]
     Route: 048
     Dates: start: 20090903
  14. ONDANSETRON [Concomitant]
     Dosage: ONDANSETRON HCL
     Route: 048
     Dates: start: 20090911
  15. PROMETHAZINE [Concomitant]
     Route: 048
     Dates: start: 20090918

REACTIONS (1)
  - HAEMORRHAGIC STROKE [None]
